FAERS Safety Report 4866492-9 (Version None)
Quarter: 2005Q4

REPORT INFORMATION
  Report Type: 
  Country: None (occurrence: None)
  Receive Date: 20051227
  Receipt Date: 20051005
  Transmission Date: 20060501
  Serious: Yes (Hospitalization)
  Sender: FDA-Public Use
  Company Number: US-MERCK-0510USA04213

PATIENT
  Age: 33 Year
  Sex: Male
  Weight: 75 kg

DRUGS (5)
  1. VIOXX [Suspect]
     Indication: PAIN
     Route: 048
     Dates: start: 20030701, end: 20031201
  2. LOVENOX [Concomitant]
     Route: 065
  3. COUMADIN [Concomitant]
     Route: 065
  4. MELATONINA [Concomitant]
     Route: 065
  5. AMBIEN [Concomitant]
     Route: 065

REACTIONS (3)
  - PLEURAL EFFUSION [None]
  - SHOULDER PAIN [None]
  - SUBCLAVIAN VEIN THROMBOSIS [None]
